FAERS Safety Report 5424000-8 (Version None)
Quarter: 2007Q3

REPORT INFORMATION
  Report Type: 
  Country: None (occurrence: None)
  Receive Date: 20070823
  Receipt Date: 20070815
  Transmission Date: 20080115
  Serious: Yes (Other)
  Sender: FDA-Public Use
  Company Number: US-TYCO HEALTHCARE/MALLINCKRODT-T200700951

PATIENT
  Age: 15 Year

DRUGS (1)
  1. METHADOSE [Suspect]

REACTIONS (1)
  - LOSS OF CONSCIOUSNESS [None]
